FAERS Safety Report 4435167-2 (Version None)
Quarter: 2004Q3

REPORT INFORMATION
  Report Type: 
  Country: None (occurrence: None)
  Receive Date: 20040826
  Receipt Date: 20040816
  Transmission Date: 20050211
  Serious: Yes (Hospitalization)
  Sender: FDA-Public Use
  Company Number: EM2004-0429

PATIENT
  Age: 55 Year
  Sex: Male
  Weight: 53 kg

DRUGS (1)
  1. PROLEUKIN [Suspect]
     Indication: RENAL CELL CARCINOMA STAGE UNSPECIFIED
     Dosage: 10 MU/M2, TWICE, SUBCUTAN.
     Route: 058
     Dates: start: 20040614, end: 20040615

REACTIONS (2)
  - CYANOSIS [None]
  - RAYNAUD'S PHENOMENON [None]
